FAERS Safety Report 15339791 (Version 1)
Quarter: 2018Q3

REPORT INFORMATION
  Report Type: Report from Study
  Country: US (occurrence: US)
  Receive Date: 20180831
  Receipt Date: 20180831
  Transmission Date: 20181010
  Serious: Yes (Other)
  Sender: FDA-Public Use
  Company Number: PHHY2018US083212

PATIENT
  Age: 85 Year
  Sex: Male

DRUGS (1)
  1. SIMBRINZA [Suspect]
     Active Substance: BRIMONIDINE TARTRATE\BRINZOLAMIDE
     Indication: GLAUCOMA
     Dosage: UNK
     Route: 065

REACTIONS (5)
  - Glaucoma [Unknown]
  - Eye irritation [Recovered/Resolved]
  - Visual impairment [Unknown]
  - Ocular hyperaemia [Recovered/Resolved]
  - Retinal disorder [Unknown]

NARRATIVE: CASE EVENT DATE: 20180428
